FAERS Safety Report 8561949 (Version 4)
Quarter: 2013Q4

REPORT INFORMATION
  Report Type: Spontaneous
  Country: US (occurrence: US)
  Receive Date: 20120515
  Receipt Date: 20131106
  Transmission Date: 20140711
  Serious: Yes (Death, Hospitalization, Other)
  Sender: FDA-Public Use
  Company Number: US-BAYER-2012-045453

PATIENT
  Age: 32 Year
  Sex: Female

DRUGS (5)
  1. BEYAZ [Suspect]
     Indication: CONTRACEPTION
     Dosage: UNK
     Dates: start: 201101, end: 20110219
  2. YASMIN [Suspect]
     Indication: CONTRACEPTION
     Dosage: UNK
     Dates: start: 200504, end: 200803
  3. AZITHROMYCIN [Concomitant]
     Indication: PNEUMONIA
     Dosage: 250 MG, UNK
  4. BENZONATATE [Concomitant]
     Dosage: 200 MG, UNK
  5. CLONIDINE [Concomitant]
     Dosage: 0.1 MG, UNK

REACTIONS (11)
  - Pulmonary embolism [Fatal]
  - Pneumothorax [None]
  - Respiratory arrest [None]
  - Pain [Fatal]
  - Injury [Fatal]
  - Anxiety [None]
  - Emotional distress [None]
  - Anhedonia [None]
  - Back pain [Fatal]
  - Dyspnoea [Fatal]
  - Chest pain [Fatal]
